FAERS Safety Report 6504629-6 (Version None)
Quarter: 2009Q4

REPORT INFORMATION
  Report Type: 
  Country: None (occurrence: None)
  Receive Date: 20091218
  Receipt Date: 20091216
  Transmission Date: 20100525
  Serious: Yes (Death, Hospitalization, Other)
  Sender: FDA-Public Use
  Company Number: US-ASTRAZENECA-2006UW20965

PATIENT
  Age: 16930 Day
  Sex: Male

DRUGS (30)
  1. SEROQUEL [Suspect]
     Indication: NERVOUSNESS
     Dosage: 75 MG-400 MG
     Route: 048
     Dates: start: 20030218
  2. SEROQUEL [Suspect]
     Indication: DEPRESSION
     Dosage: 75 MG-400 MG
     Route: 048
     Dates: start: 20030218
  3. SEROQUEL [Suspect]
     Indication: ANXIETY
     Dosage: 75 MG-400 MG
     Route: 048
     Dates: start: 20030218
  4. SEROQUEL [Suspect]
     Dosage: TWO TIMES A DAY, UNKNOWN DOSE
     Route: 048
     Dates: start: 20030228
  5. SEROQUEL [Suspect]
     Dosage: TWO TIMES A DAY, UNKNOWN DOSE
     Route: 048
     Dates: start: 20030228
  6. SEROQUEL [Suspect]
     Dosage: TWO TIMES A DAY, UNKNOWN DOSE
     Route: 048
     Dates: start: 20030228
  7. SEROQUEL [Suspect]
     Dosage: 150 MG TO 200 MG
     Route: 048
     Dates: start: 20030606
  8. SEROQUEL [Suspect]
     Dosage: 150 MG TO 200 MG
     Route: 048
     Dates: start: 20030606
  9. SEROQUEL [Suspect]
     Dosage: 150 MG TO 200 MG
     Route: 048
     Dates: start: 20030606
  10. PAXIL [Concomitant]
  11. REMERON [Concomitant]
  12. SONATA [Concomitant]
  13. STARLIX [Concomitant]
  14. INSULIN [Concomitant]
  15. TRAMADOL HCL [Concomitant]
  16. HYDROCHLOROTHIAZIDE [Concomitant]
  17. LORAZEPAM [Concomitant]
  18. FUROSEMIDE [Concomitant]
  19. PREDNISOLONE [Concomitant]
  20. CHLORDIAZEPOXIDE [Concomitant]
  21. SERTRALINE HCL [Concomitant]
  22. CLONIDINE [Concomitant]
  23. TRIAMCINOLONE [Concomitant]
  24. DICYCLOMINE [Concomitant]
  25. AMITRIPTYLINE [Concomitant]
  26. GLYBURIDE [Concomitant]
  27. HYDROXYZINE [Concomitant]
  28. NORVASC [Concomitant]
     Dates: start: 20041111
  29. PANCREASE [Concomitant]
     Dosage: 2 TABLETS DAILY
     Dates: start: 20061130
  30. NOVOLIN [Concomitant]
     Dosage: 70/30 - 20 UNITS DAILY
     Dates: start: 20030815

REACTIONS (11)
  - DEATH [None]
  - DIABETES MELLITUS [None]
  - DIABETES MELLITUS INADEQUATE CONTROL [None]
  - DIABETIC COMA [None]
  - KETOACIDOSIS [None]
  - PANCREATITIS [None]
  - PANCREATITIS ACUTE [None]
  - PANCREATITIS CHRONIC [None]
  - PANCREATITIS RELAPSING [None]
  - TYPE 1 DIABETES MELLITUS [None]
  - TYPE 2 DIABETES MELLITUS [None]
